FAERS Safety Report 4366638-5 (Version None)
Quarter: 2004Q2

REPORT INFORMATION
  Report Type: 
  Country: None (occurrence: None)
  Receive Date: 20040524
  Receipt Date: 20040511
  Transmission Date: 20050107
  Serious: Yes (Hospitalization)
  Sender: FDA-Public Use
  Company Number: 04P-028-0251868-00

PATIENT
  Age: 22 Year
  Sex: Female
  Weight: 98.1 kg

DRUGS (7)
  1. ULTANE [Suspect]
     Indication: ANAESTHESIA
     Dates: start: 20040226, end: 20040226
  2. ATRACURIUM BESYLATE [Concomitant]
  3. ATROPINE [Concomitant]
  4. CEFAZOLIN [Concomitant]
  5. EDROPHONIUM CHLORIDE [Concomitant]
  6. FLAGYL [Concomitant]
  7. PROPOFOL [Concomitant]

REACTIONS (7)
  - BRONCHOSPASM [None]
  - BRUXISM [None]
  - CREPITATIONS [None]
  - LARYNGOSPASM [None]
  - LUNG CREPITATION [None]
  - PULMONARY OEDEMA [None]
  - SKIN DISCOLOURATION [None]
